FAERS Safety Report 18651176 (Version 3)
Quarter: 2021Q1

REPORT INFORMATION
  Report Type: Spontaneous
  Country: US (occurrence: US)
  Receive Date: 20201222
  Receipt Date: 20210129
  Transmission Date: 20210419
  Serious: Yes (Other)
  Sender: FDA-Public Use
  Company Number: US-CELGENEUS-USA-20201206298

PATIENT
  Sex: Female

DRUGS (9)
  1. THALOMID [Suspect]
     Active Substance: THALIDOMIDE
     Route: 048
     Dates: start: 2011
  2. THALOMID [Suspect]
     Active Substance: THALIDOMIDE
     Dosage: 400?300 MILLIGRAM
     Route: 048
     Dates: start: 201403
  3. THALOMID [Suspect]
     Active Substance: THALIDOMIDE
     Indication: LEPROSY
     Dosage: 50 MILLIGRAM
     Route: 048
     Dates: start: 202008
  4. THALOMID [Suspect]
     Active Substance: THALIDOMIDE
     Dosage: 300?100 MILLIGRAM
     Route: 048
     Dates: start: 201206
  5. THALOMID [Suspect]
     Active Substance: THALIDOMIDE
     Dosage: 100?400 MILLIGRAM
     Route: 048
     Dates: start: 201506
  6. THALOMID [Suspect]
     Active Substance: THALIDOMIDE
     Dosage: 350?300 MILLIGRAM
     Route: 048
     Dates: start: 201707
  7. THALOMID [Suspect]
     Active Substance: THALIDOMIDE
     Dosage: 150?100 MILLIGRAM
     Route: 048
     Dates: start: 201911
  8. THALOMID [Suspect]
     Active Substance: THALIDOMIDE
     Dosage: 50 MILLIGRAM
     Route: 048
     Dates: start: 202008
  9. THALOMID [Suspect]
     Active Substance: THALIDOMIDE
     Dosage: 250?200 MILLIGRAM
     Route: 048
     Dates: start: 201905

REACTIONS (2)
  - Limb discomfort [Recovered/Resolved]
  - Diabetic neuropathy [Unknown]

NARRATIVE: CASE EVENT DATE: 2011
